FAERS Safety Report 6835901 (Version 5)
Quarter: 2014Q3

REPORT INFORMATION
  Report Type: Report from Study
  Country: JP (occurrence: JP)
  Receive Date: 20081208
  Receipt Date: 20140903
  Transmission Date: 20150326
  Serious: Yes (Life-Threatening, Hospitalization, Disabling, Other)
  Sender: FDA-Public Use
  Company Number: PHHY2008JP30002

PATIENT
  Age: 81 Year
  Sex: Female
  Weight: 49 kg

DRUGS (10)
  1. ICL670A [Suspect]
     Active Substance: DEFERASIROX
     Indication: IRON OVERLOAD
     Dosage: 1000 MG, PER DAY
     Route: 048
     Dates: start: 20081001
  2. BLOOD CELLS [Concomitant]
     Dosage: UNK UKN, UNK
     Dates: start: 20081017, end: 20081110
  3. BLOOD CELLS [Concomitant]
     Dosage: 2 UNITS
     Dates: start: 20081120, end: 20081231
  4. BLOOD CELLS [Concomitant]
     Dosage: UNK UKN, UNK
  5. PRIMOBOLAN-DEPOT [Concomitant]
     Active Substance: METHENOLONE ENANTHATE
     Dosage: 20 MG
     Route: 048
     Dates: start: 20081017, end: 20081110
  6. PYDOXAL [Concomitant]
     Active Substance: PYRIDOXAL
     Dosage: 40 MG
     Dates: start: 20081017, end: 20081110
  7. BLOOD TRANSFUSION [Concomitant]
     Active Substance: WHOLE BLOOD
     Dosage: UNK UKN, UNK
     Dates: start: 20070706, end: 20070926
  8. BLOOD CELLS [Concomitant]
     Dosage: 2 UNITS EVERY DAY
     Dates: start: 20081111, end: 20081120
  9. DEPAS [Concomitant]
     Active Substance: ETIZOLAM
     Indication: INSOMNIA
     Dosage: 1 MG
     Route: 048
     Dates: start: 20081017, end: 20081110
  10. ICL670A [Suspect]
     Active Substance: DEFERASIROX
     Indication: MYELODYSPLASTIC SYNDROME
     Dosage: 1000 MG, DAILY
     Route: 048
     Dates: start: 20081017, end: 20081110

REACTIONS (10)
  - Blood urea increased [Unknown]
  - Haematemesis [Unknown]
  - Blood bilirubin increased [Unknown]
  - Gastric ulcer haemorrhage [Recovering/Resolving]
  - Blood creatinine increased [Unknown]
  - Oedema [Unknown]
  - Gastrointestinal perforation [Recovering/Resolving]
  - Shock [Unknown]
  - Renal failure acute [Recovering/Resolving]
  - Blood lactate dehydrogenase increased [Unknown]

NARRATIVE: CASE EVENT DATE: 20081111
